FAERS Safety Report 18519452 (Version 2)
Quarter: 2021Q1

REPORT INFORMATION
  Report Type: Spontaneous
  Country: US (occurrence: US)
  Receive Date: 20201118
  Receipt Date: 20210224
  Transmission Date: 20210419
  Serious: Yes (Hospitalization)
  Sender: FDA-Public Use
  Company Number: US-BRISTOL-MYERS SQUIBB COMPANY-BMS-2020-095565

PATIENT
  Age: 62 Year
  Sex: Male
  Weight: 104 kg

DRUGS (2)
  1. OPDIVO [Suspect]
     Active Substance: NIVOLUMAB
     Indication: HEPATIC CANCER
     Dosage: UNK, Q3WK
     Route: 042
     Dates: start: 2020, end: 202010
  2. YERVOY [Suspect]
     Active Substance: IPILIMUMAB
     Indication: HEPATIC CANCER
     Dosage: UNK, Q3WK
     Route: 042
     Dates: start: 2020, end: 202010

REACTIONS (3)
  - Dyspnoea [Unknown]
  - Productive cough [Unknown]
  - Colitis [Unknown]

NARRATIVE: CASE EVENT DATE: 202010
